FAERS Safety Report 8901434 (Version 1)
Quarter: 2012Q4

REPORT INFORMATION
  Report Type: Report from Study
  Country: CA (occurrence: CA)
  Receive Date: 20121109
  Receipt Date: 20121109
  Transmission Date: 20130627
  Serious: Yes (Other)
  Sender: FDA-Public Use
  Company Number: CA-JNJFOC-20121100466

PATIENT
  Age: 52 Year
  Sex: Female
  Weight: 94 kg

DRUGS (1)
  1. REMICADE [Suspect]
     Indication: PRODUCT USED FOR UNKNOWN INDICATION
     Route: 042
     Dates: start: 20091230

REACTIONS (6)
  - Arthralgia [Unknown]
  - Abdominal pain [Unknown]
  - Haematochezia [Unknown]
  - Decreased appetite [Unknown]
  - Fatigue [Unknown]
  - Insomnia [Unknown]
